FAERS Safety Report 25116396 (Version 1)
Quarter: 2025Q1

REPORT INFORMATION
  Report Type: Report from Study
  Country: US (occurrence: US)
  Receive Date: 20250325
  Receipt Date: 20250325
  Transmission Date: 20250409
  Serious: Yes (Other)
  Sender: ABBVIE
  Company Number: US-ABBVIE-6186189

PATIENT
  Age: 62 Year
  Sex: Male
  Weight: 86.182 kg

DRUGS (2)
  1. VYALEV [Suspect]
     Active Substance: FOSCARBIDOPA\FOSLEVODOPA
     Indication: Parkinson^s disease
     Route: 058
     Dates: start: 20241210
  2. ROSUVASTATIN [Concomitant]
     Active Substance: ROSUVASTATIN
     Indication: Blood cholesterol abnormal

REACTIONS (8)
  - Nephrolithiasis [Recovered/Resolved]
  - Catheter site papule [Recovering/Resolving]
  - Catheter site erythema [Recovering/Resolving]
  - Injection site pain [Recovering/Resolving]
  - Catheter site pain [Recovered/Resolved]
  - Catheter site mass [Recovered/Resolved]
  - Catheter site warmth [Recovered/Resolved]
  - Injection site mass [Recovering/Resolving]

NARRATIVE: CASE EVENT DATE: 20241220
